FAERS Safety Report 21669633 (Version 8)
Quarter: 2023Q2

REPORT INFORMATION
  Report Type: Report from Study
  Country: TR (occurrence: None)
  Receive Date: 20221201
  Receipt Date: 20230524
  Transmission Date: 20230721
  Serious: Yes (Hospitalization)
  Sender: FDA-Public Use
  Company Number: TR-ROCHE-3226382

PATIENT
  Age: 54 Year
  Sex: Male
  Weight: 64 kg

DRUGS (5)
  1. TIRAGOLUMAB [Suspect]
     Active Substance: TIRAGOLUMAB
     Indication: Non-small cell lung cancer stage III
     Dosage: DOSE LAST STUDY DRUG ADMIN PRIOR AE/SAE 840 MG, START DATE OF MOST RECENT DOSE OF STUDY DRUG PRIOR T
     Route: 042
     Dates: start: 20220621
  2. ATEZOLIZUMAB [Suspect]
     Active Substance: ATEZOLIZUMAB
     Indication: Non-small cell lung cancer stage III
     Dosage: DOSE LAST STUDY DRUG ADMIN PRIOR AE/SAE WAS 1680 MG, START DATE OF MOST RECENT DOSE OF STUDY DRUG PR
     Route: 041
     Dates: start: 20220621
  3. ZYRTEC (TURKEY) [Concomitant]
     Indication: Rash
     Route: 048
     Dates: start: 20220905
  4. MADECASSOL [Concomitant]
     Active Substance: CENTELLA ASIATICA\NEOMYCIN SULFATE
     Indication: Rash
     Route: 061
     Dates: start: 20220922, end: 20221115
  5. DERMABEL [BETAMETHASONE] [Concomitant]
     Indication: Rash
     Route: 061
     Dates: start: 20221022, end: 20221115

REACTIONS (1)
  - Autoimmune pancreatitis [Recovered/Resolved]

NARRATIVE: CASE EVENT DATE: 20221126
